FAERS Safety Report 5388586-4 (Version None)
Quarter: 2007Q3

REPORT INFORMATION
  Report Type: 
  Country: None (occurrence: None)
  Receive Date: 20070716
  Receipt Date: 20070704
  Transmission Date: 20080115
  Serious: Yes (Other)
  Sender: FDA-Public Use
  Company Number: GB-PFIZER INC-2007054840

PATIENT
  Age: 75 Year
  Sex: Male
  Weight: 85 kg

DRUGS (9)
  1. AMLODIPINE [Suspect]
     Indication: HYPERTENSION
     Route: 048
     Dates: start: 20070522, end: 20070615
  2. ADCAL-D3 [Concomitant]
  3. AIROMIR [Concomitant]
  4. ALENDRONIC ACID [Concomitant]
  5. DESLORATADINE [Concomitant]
  6. MONTELUKAST SODIUM [Concomitant]
  7. PREDNISOLONE [Concomitant]
  8. SYMBICORT [Concomitant]
  9. UNIPHYL [Concomitant]

REACTIONS (3)
  - HALLUCINATION [None]
  - INSOMNIA [None]
  - VISUAL DISTURBANCE [None]
